FAERS Safety Report 4294986-6 (Version None)
Quarter: 2004Q1

REPORT INFORMATION
  Report Type: 
  Country: None (occurrence: None)
  Receive Date: 20040211
  Receipt Date: 20040202
  Transmission Date: 20041129
  Serious: Yes (Death)
  Sender: FDA-Public Use
  Company Number: HQWYE618911APR03

PATIENT
  Age: 20 Year
  Sex: Male
  Weight: 59.47 kg

DRUGS (5)
  1. EFFEXOR [Suspect]
     Indication: DEPRESSION
     Dosage: 37.5 MG 1X PER 1 DAY, ORAL
     Route: 048
     Dates: start: 20010301, end: 20010301
  2. ALCOHOL (ETHANOL) [Suspect]
  3. AMBIEN [Suspect]
  4. ELAVIL [Suspect]
     Indication: MIGRAINE
     Dosage: 20 MG 1X PER 1 DAY, ORAL
     Route: 048
     Dates: start: 20001109, end: 20010307
  5. MAXALT [Concomitant]

REACTIONS (10)
  - AKATHISIA [None]
  - ALCOHOL USE [None]
  - COMPLETED SUICIDE [None]
  - CONDITION AGGRAVATED [None]
  - CONVULSION [None]
  - DEPRESSION [None]
  - IMPULSIVE BEHAVIOUR [None]
  - INJURY ASPHYXIATION [None]
  - LOSS OF CONSCIOUSNESS [None]
  - SEROTONIN SYNDROME [None]
